FAERS Safety Report 4697399-8 (Version None)
Quarter: 2005Q2

REPORT INFORMATION
  Report Type: 
  Country: None (occurrence: None)
  Receive Date: 20050621
  Receipt Date: 20050607
  Transmission Date: 20051028
  Serious: Yes (Death, Life-Threatening, Other)
  Sender: FDA-Public Use
  Company Number: USA050699922

PATIENT
  Age: 79 Year
  Sex: Male

DRUGS (1)
  1. HUMULIN-HUMAN INSULIN (RDNA) [Suspect]
     Dates: start: 20050201

REACTIONS (1)
  - DEATH [None]
